FAERS Safety Report 24368107 (Version 1)
Quarter: 2024Q3

REPORT INFORMATION
  Report Type: Spontaneous
  Country: US (occurrence: US)
  Receive Date: 20240926
  Receipt Date: 20240926
  Transmission Date: 20241016
  Serious: No
  Sender: MCGUFF
  Company Number: US-McGuff Pharmaceuticals, Inc.-2162108

PATIENT
  Age: 83 Year
  Sex: Male
  Weight: 93.182 kg

DRUGS (5)
  1. ASCOR [Suspect]
     Active Substance: ASCORBIC ACID
     Indication: Promotion of wound healing
     Dates: start: 20240725, end: 20240725
  2. WARFARIN SODIUM [Concomitant]
     Active Substance: WARFARIN SODIUM
  3. METOPROLOL SUCCINATE [Concomitant]
     Active Substance: METOPROLOL SUCCINATE
  4. TELMISARTAN [Concomitant]
     Active Substance: TELMISARTAN
  5. CHLORTHALIDONE [Concomitant]
     Active Substance: CHLORTHALIDONE

REACTIONS (3)
  - Burning sensation [Recovered/Resolved]
  - Pain [Recovered/Resolved]
  - Paraesthesia [Recovered/Resolved]

NARRATIVE: CASE EVENT DATE: 20240725
